FAERS Safety Report 4437543-0 (Version None)
Quarter: 2004Q3

REPORT INFORMATION
  Report Type: 
  Country: None (occurrence: None)
  Receive Date: 20040827
  Receipt Date: 20040823
  Transmission Date: 20050211
  Serious: Yes (Hospitalization, Disabling)
  Sender: FDA-Public Use
  Company Number: GB9351321NOV2002

PATIENT
  Age: 40 Year
  Sex: Female

DRUGS (3)
  1. MINOCIN [Suspect]
     Indication: ROSACEA
     Dosage: SEE IMAGE
     Route: 048
     Dates: start: 20020813, end: 20021102
  2. MINOCIN [Suspect]
     Indication: ROSACEA
     Dosage: SEE IMAGE
     Route: 048
     Dates: start: 19990101
  3. CITALOPRAM HYDROBROMIDE [Concomitant]

REACTIONS (17)
  - ANTI-THYROID ANTIBODY POSITIVE [None]
  - ANTINUCLEAR ANTIBODY POSITIVE [None]
  - AUTOIMMUNE HEPATITIS [None]
  - BILIARY NEOPLASM [None]
  - C-REACTIVE PROTEIN INCREASED [None]
  - COMPLEMENT FACTOR C3 INCREASED [None]
  - CREATININE RENAL CLEARANCE DECREASED [None]
  - DIARRHOEA [None]
  - FIBROMYALGIA [None]
  - GLUCOSE TOLERANCE IMPAIRED [None]
  - HAEMATURIA [None]
  - LUPUS-LIKE SYNDROME [None]
  - MUSCULOSKELETAL PAIN [None]
  - NAUSEA [None]
  - RED BLOOD CELL SEDIMENTATION RATE INCREASED [None]
  - RENAL DISORDER [None]
  - WEIGHT DECREASED [None]
